FAERS Safety Report 5748031-3 (Version None)
Quarter: 2008Q2

REPORT INFORMATION
  Report Type: 
  Country: None (occurrence: None)
  Receive Date: 20080523
  Receipt Date: 20080515
  Transmission Date: 20081010
  Serious: Yes (Hospitalization)
  Sender: FDA-Public Use
  Company Number: US-JNJFOC-20051105806

PATIENT
  Sex: Female
  Weight: 63.2 kg

DRUGS (3)
  1. ORTHO EVRA [Suspect]
     Indication: PAIN
     Route: 062
  2. ORTHO EVRA [Suspect]
     Indication: ENDOMETRIOSIS
     Dosage: NO PATCH-FREE WEEKS
     Route: 062
  3. BETAPACE [Concomitant]
     Indication: DRUG USE FOR UNKNOWN INDICATION

REACTIONS (5)
  - DEEP VEIN THROMBOSIS [None]
  - INTENTIONAL DRUG MISUSE [None]
  - JUGULAR VEIN THROMBOSIS [None]
  - SUPERIOR VENA CAVAL OCCLUSION [None]
  - TACHYCARDIA [None]
